FAERS Safety Report 8060107-7 (Version None)
Quarter: 2012Q1

REPORT INFORMATION
  Report Type: 
  Country: None (occurrence: None)
  Receive Date: 20120112
  Receipt Date: 20111227
  Transmission Date: 20120608
  Serious: Yes (Death, Hospitalization)
  Sender: FDA-Public Use
  Company Number: DSA_48663_2011

PATIENT
  Age: 54 Year
  Sex: Male

DRUGS (2)
  1. LORAZEPAM [Suspect]
     Indication: PRODUCT USED FOR UNKNOWN INDICATION
     Dosage: (DF ORAL)
     Route: 048
  2. ACETAMINOPHEN W/ PROPOXYPHENE HCL [Suspect]
     Indication: PRODUCT USED FOR UNKNOWN INDICATION
     Dosage: (DF ORAL)
     Route: 048

REACTIONS (20)
  - ACIDOSIS [None]
  - DRUG SCREEN POSITIVE [None]
  - AMMONIA [None]
  - UNRESPONSIVE TO STIMULI [None]
  - COMPLETED SUICIDE [None]
  - ACTIVATED PARTIAL THROMBOPLASTIN TIME PROLONGED [None]
  - PUPIL FIXED [None]
  - GASTROINTESTINAL SOUNDS ABNORMAL [None]
  - PROTHROMBIN TIME PROLONGED [None]
  - POISONING [None]
  - BLOOD CREATININE INCREASED [None]
  - PO2 INCREASED [None]
  - AREFLEXIA [None]
  - ACUTE HEPATIC FAILURE [None]
  - PLATELET COUNT DECREASED [None]
  - HYPOTENSION [None]
  - HYPOTHERMIA [None]
  - BLOOD GLUCOSE INCREASED [None]
  - BLOOD CREATINE PHOSPHOKINASE INCREASED [None]
  - TOXICITY TO VARIOUS AGENTS [None]
